FAERS Safety Report 24439928 (Version 1)
Quarter: 2024Q4

REPORT INFORMATION
  Report Type: Spontaneous
  Country: US (occurrence: US)
  Receive Date: 20241015
  Receipt Date: 20241015
  Transmission Date: 20250114
  Serious: Yes (Hospitalization, Other)
  Sender: ABBVIE
  Company Number: US-ABBVIE-5956849

PATIENT

DRUGS (1)
  1. QULIPTA [Suspect]
     Active Substance: ATOGEPANT
     Indication: Product used for unknown indication
     Dosage: FORM STRENGTH: 60 MILLIGRAM?FREQUENCY TEXT: UNKNOWN?START DATE TEXT: UNKNOWN
     Route: 048

REACTIONS (1)
  - Cerebrovascular accident [Unknown]
